FAERS Safety Report 9542960 (Version 1)
Quarter: 2013Q3

REPORT INFORMATION
  Report Type: Spontaneous
  Country: US (occurrence: US)
  Receive Date: 20130923
  Receipt Date: 20130923
  Transmission Date: 20140515
  Serious: No
  Sender: FDA-Public Use
  Company Number: US-009507513-1309USA007196

PATIENT
  Age: 50 Year
  Sex: Female

DRUGS (3)
  1. ISENTRESS CHEWABLE TABLETS [Suspect]
     Indication: HIV INFECTION
     Dosage: 400 MG, BID
     Route: 048
  2. INTELENCE [Suspect]
     Indication: HIV INFECTION
     Dosage: UNK
  3. KALETRA [Suspect]
     Indication: HIV INFECTION
     Dosage: UNK

REACTIONS (3)
  - Therapeutic response unexpected [Unknown]
  - Weight increased [Unknown]
  - Off label use [Unknown]
